FAERS Safety Report 12202312 (Version 34)
Quarter: 2021Q2

REPORT INFORMATION
  Report Type: Report from Study
  Country: CA (occurrence: CA)
  Receive Date: 20160322
  Receipt Date: 20210624
  Transmission Date: 20210716
  Serious: Yes (Hospitalization, Other)
  Sender: FDA-Public Use
  Company Number: PHHY2013CA030890

PATIENT
  Age: 50 Year
  Sex: Male

DRUGS (10)
  1. LUTETIUM (LU 177) [Suspect]
     Active Substance: LUTETIUM LU-177
     Dosage: UNK
     Route: 065
  2. SANDOSTATIN LAR DEPOT [Suspect]
     Active Substance: OCTREOTIDE ACETATE
     Indication: CARCINOID TUMOUR
     Dosage: 30 MG, Q3W
     Route: 030
     Dates: start: 20120130
  3. LUTETIUM (LU 177) [Suspect]
     Active Substance: LUTETIUM LU-177
     Indication: PRODUCT USED FOR UNKNOWN INDICATION
     Dosage: UNK
     Route: 065
     Dates: start: 20190423
  4. SANDOSTATIN [Suspect]
     Active Substance: OCTREOTIDE ACETATE
     Indication: CARCINOID TUMOUR
  5. SANDOSTATIN LAR DEPOT [Suspect]
     Active Substance: OCTREOTIDE ACETATE
     Indication: NEUROENDOCRINE TUMOUR
     Dosage: 30 MG, QMO (EVERY 4 WEEKS)
     Route: 030
     Dates: start: 20120130
  6. SANDOSTATIN LAR DEPOT [Suspect]
     Active Substance: OCTREOTIDE ACETATE
     Dosage: 30 MG, Q3W
     Route: 030
     Dates: start: 2020
  7. LUTETIUM (LU 177) [Suspect]
     Active Substance: LUTETIUM LU-177
     Dosage: UNK
     Route: 065
     Dates: start: 20190827
  8. SANDOSTATIN [Suspect]
     Active Substance: OCTREOTIDE ACETATE
  9. SANDOSTATIN [Suspect]
     Active Substance: OCTREOTIDE ACETATE
     Indication: NEUROENDOCRINE TUMOUR
     Dosage: UNK, ONCE/SINGLE (TEST DOSE)
     Route: 058
     Dates: start: 20120119, end: 20120119
  10. LUTETIUM (LU 177) [Suspect]
     Active Substance: LUTETIUM LU-177
     Dosage: UNK
     Route: 065
     Dates: start: 20191022

REACTIONS (29)
  - Inflammation [Unknown]
  - Blood pressure increased [Unknown]
  - Diarrhoea [Unknown]
  - Decreased appetite [Unknown]
  - Fatigue [Recovering/Resolving]
  - Pain [Unknown]
  - Feeling abnormal [Unknown]
  - Nausea [Recovering/Resolving]
  - Fatigue [Recovered/Resolved]
  - Arthralgia [Unknown]
  - Dyspnoea [Unknown]
  - Body temperature decreased [Unknown]
  - Bladder diverticulitis [Unknown]
  - Abdominal distension [Unknown]
  - Abdominal discomfort [Unknown]
  - Needle issue [Unknown]
  - Gallbladder disorder [Unknown]
  - Metastases to peritoneum [Unknown]
  - Malignant neoplasm progression [Unknown]
  - Confusional state [Unknown]
  - Diarrhoea [Recovered/Resolved]
  - Inappropriate schedule of product administration [Unknown]
  - Abnormal dreams [Unknown]
  - Malaise [Unknown]
  - Asthenia [Unknown]
  - Influenza like illness [Unknown]
  - Herpes zoster [Recovered/Resolved]
  - Neuroendocrine tumour [Unknown]
  - Heart rate decreased [Unknown]

NARRATIVE: CASE EVENT DATE: 20130326
